FAERS Safety Report 26039591 (Version 2)
Quarter: 2025Q4

REPORT INFORMATION
  Report Type: Spontaneous
  Country: US (occurrence: US)
  Receive Date: 20251113
  Receipt Date: 20251209
  Transmission Date: 20260118
  Serious: No
  Sender: Haleon PLC
  Company Number: US-HALEON-2273731

PATIENT

DRUGS (1)
  1. NICOTINE POLACRILEX [Suspect]
     Active Substance: NICOTINE
     Indication: Product used for unknown indication

REACTIONS (1)
  - Abdominal pain upper [Unknown]
